FAERS Safety Report 9914117 (Version 1)
Quarter: 2014Q1

REPORT INFORMATION
  Report Type: Spontaneous
  Country: US (occurrence: None)
  Receive Date: 20140218
  Receipt Date: 20140218
  Transmission Date: 20141002
  Serious: Yes (Disabling)
  Sender: FDA-Public Use
  Company Number: BA14-040-AE

PATIENT
  Age: 47 Year
  Sex: Female

DRUGS (5)
  1. VENLAFAXINE HCL [Suspect]
     Indication: DEPRESSION
     Dosage: 1 TABLET BID, ORAL
     Route: 048
     Dates: end: 20140212
  2. VENLAFAXINE HCL [Suspect]
     Indication: DEPRESSION
     Dosage: 1 TABLET BID, ORAL
     Route: 048
     Dates: end: 20140212
  3. RANITIDINE HCL 300 MG [Concomitant]
  4. OXYCODONE 5/325 [Concomitant]
  5. LORAZEPAM 0.5 MG [Concomitant]

REACTIONS (3)
  - Deafness [None]
  - Ototoxicity [None]
  - Poisoning [None]
